FAERS Safety Report 23627768 (Version 4)
Quarter: 2024Q4

REPORT INFORMATION
  Report Type: Spontaneous
  Country: JP (occurrence: JP)
  Receive Date: 20240313
  Receipt Date: 20241121
  Transmission Date: 20250115
  Serious: Yes (Life-Threatening)
  Sender: ROCHE
  Company Number: JP-CHUGAI-2024007810

PATIENT
  Age: 70 Year
  Sex: Male
  Weight: 66.8 kg

DRUGS (4)
  1. HEMLIBRA [Suspect]
     Active Substance: EMICIZUMAB-KXWH
     Indication: Haemophilia A without inhibitors
     Dosage: 210 MILLIGRAM, ONCE/4WEEKS
     Route: 058
     Dates: start: 20200303, end: 202306
  2. HEMLIBRA [Suspect]
     Active Substance: EMICIZUMAB-KXWH
     Dosage: 210 MILLIGRAM, ONCE/4WEEKS
     Route: 058
     Dates: start: 20231121, end: 20240122
  3. MAGNESIUM OXIDE [Concomitant]
     Active Substance: MAGNESIUM OXIDE
     Dosage: UNK
     Route: 050
     Dates: start: 20230116
  4. FERROUS CITRATE [Concomitant]
     Active Substance: FERROUS CITRATE
     Dosage: UNK
     Dates: start: 20231120

REACTIONS (2)
  - Activated partial thromboplastin time prolonged [Unknown]
  - Brain stem haemorrhage [Recovered/Resolved with Sequelae]

NARRATIVE: CASE EVENT DATE: 20240209
